FAERS Safety Report 6697758-8 (Version None)
Quarter: 2010Q2

REPORT INFORMATION
  Report Type: 
  Country: None (occurrence: None)
  Receive Date: 20100423
  Receipt Date: 20100414
  Transmission Date: 20101027
  Serious: Yes (Hospitalization)
  Sender: FDA-Public Use
  Company Number: 1000013330

PATIENT
  Sex: Female

DRUGS (4)
  1. ESCITALOPRAM [Suspect]
     Dosage: 10 MG (10 MG, 1 IN 1 D), ORAL
     Route: 048
  2. CLOPIXOL (SOLUTION) [Suspect]
     Dosage: SEE IMAGE
     Route: 030
  3. LEPTICUR [Concomitant]
  4. LYSANXIA [Concomitant]

REACTIONS (2)
  - DRUG EFFECT DECREASED [None]
  - SUICIDAL IDEATION [None]
